FAERS Safety Report 8143185-6 (Version None)
Quarter: 2012Q1

REPORT INFORMATION
  Report Type: 
  Country: None (occurrence: None)
  Receive Date: 20120217
  Receipt Date: 20120215
  Transmission Date: 20120608
  Serious: Yes (Hospitalization)
  Sender: FDA-Public Use
  Company Number: US-PFIZER INC-2012041341

PATIENT
  Sex: Male
  Weight: 65.76 kg

DRUGS (1)
  1. ADVIL CONGESTION RELIEF [Suspect]
     Indication: SINUS DISORDER
     Dosage: UNK, 1X/DAY
     Route: 048
     Dates: start: 20120213, end: 20120213

REACTIONS (3)
  - DIZZINESS [None]
  - DYSPNOEA [None]
  - VOMITING [None]
